FAERS Safety Report 7422975-9 (Version None)
Quarter: 2011Q2

REPORT INFORMATION
  Report Type: 
  Country: None (occurrence: None)
  Receive Date: 20110411
  Receipt Date: 20110325
  Transmission Date: 20111010
  Serious: Yes (Disabling, Other)
  Sender: FDA-Public Use
  Company Number: AUR-APL-2011-01138

PATIENT
  Age: 70 Year
  Sex: Male
  Weight: 106.5 kg

DRUGS (37)
  1. XALATAN [Suspect]
  2. CYCLOSPORINE [Suspect]
  3. ACETYLSALICYLIC ACID SRT [Concomitant]
  4. DIGOXIN [Concomitant]
  5. POTASSIUM CHLORIDE [Concomitant]
  6. LIPITOR [Suspect]
  7. ZOCOR [Suspect]
  8. PROSCAR [Suspect]
  9. LUVOX [Suspect]
  10. LOSARTAN [Concomitant]
  11. TIMOLOL [Concomitant]
  12. PILOCARPINE [Concomitant]
  13. FISH OIL [Concomitant]
  14. METFORMIN HCL [Suspect]
     Indication: DIABETES MELLITUS
     Dosage: 500MG
     Dates: start: 20101018
  15. TRAMADOL HCL [Suspect]
  16. TOPROL-XL [Suspect]
  17. OXYCODONE [Concomitant]
  18. LUMIGAN [Concomitant]
  19. BILBERRY [Concomitant]
  20. ADVIL LIQUI-GELS [Suspect]
     Indication: BACK PAIN
     Dosage: 200MG-PRN
     Dates: end: 20110301
  21. LANTUS [Concomitant]
  22. PRAVASTATIN [Concomitant]
  23. ZETIA [Suspect]
  24. VICODIN [Concomitant]
  25. FUROSEMIDE [Concomitant]
  26. ALLOPURINOL [Concomitant]
  27. FOLIC ACID [Concomitant]
  28. LOTRIMIN [Suspect]
  29. PROZAC [Suspect]
  30. DIAZEPAM [Concomitant]
  31. ALPRAZOLAM [Suspect]
  32. REGIAN [Suspect]
  33. PLAVIX [Suspect]
  34. COREG [Suspect]
  35. METOPROLOL TARTRATE [Concomitant]
  36. THERA TEARS [Concomitant]
  37. CLOZAPINE [Concomitant]

REACTIONS (9)
  - NAUSEA [None]
  - SKIN IRRITATION [None]
  - BACK PAIN [None]
  - ABASIA [None]
  - DYSPNOEA [None]
  - MYALGIA [None]
  - HIP ARTHROPLASTY [None]
  - SLEEP DISORDER [None]
  - ASTHENIA [None]
